FAERS Safety Report 20187806 (Version 1)
Quarter: 2021Q4

REPORT INFORMATION
  Report Type: Spontaneous
  Country: FR (occurrence: FR)
  Receive Date: 20211215
  Receipt Date: 20211215
  Transmission Date: 20220303
  Serious: Yes (Other)
  Sender: FDA-Public Use
  Company Number: None

PATIENT
  Age: 76 Year
  Sex: Male
  Weight: 75 kg

DRUGS (2)
  1. OFLOXACIN [Suspect]
     Active Substance: OFLOXACIN
     Indication: Skin ulcer
     Dosage: 600 MILLIGRAM DAILY; 200X3
     Route: 048
     Dates: start: 20211018, end: 20211105
  2. RIFAMPIN [Suspect]
     Active Substance: RIFAMPIN
     Indication: Skin ulcer
     Dosage: 1200 MILLIGRAM DAILY; 600X2
     Route: 048
     Dates: start: 20211018, end: 20211105

REACTIONS (1)
  - Hepatocellular injury [Recovering/Resolving]

NARRATIVE: CASE EVENT DATE: 20211029
